FAERS Safety Report 10691076 (Version 1)
Quarter: 2015Q1

REPORT INFORMATION
  Report Type: Spontaneous
  Country: US (occurrence: US)
  Receive Date: 20150105
  Receipt Date: 20150105
  Transmission Date: 20150720
  Serious: No
  Sender: FDA-Public Use
  Company Number: US-009507513-1412USA010383

PATIENT
  Sex: Female

DRUGS (1)
  1. CLARITIN REDITABS [Suspect]
     Active Substance: LORATADINE
     Indication: RHINORRHOEA
     Dosage: UNK, BID
     Route: 048
     Dates: end: 201412

REACTIONS (4)
  - Unevaluable event [Unknown]
  - Drug ineffective [Unknown]
  - Paraesthesia [Unknown]
  - Overdose [Unknown]
